FAERS Safety Report 7810851-9 (Version None)
Quarter: 2011Q4

REPORT INFORMATION
  Report Type: 
  Country: None (occurrence: None)
  Receive Date: 20111013
  Receipt Date: 20110914
  Transmission Date: 20120403
  Serious: Yes (Other)
  Sender: FDA-Public Use
  Company Number: US-NAPPMUNDI-USA-2011-0075871

PATIENT
  Sex: Female

DRUGS (2)
  1. BUTRANS [Suspect]
     Indication: PAIN
     Dosage: 10 MCG, Q1H
     Route: 062
  2. BUTRANS [Suspect]
     Dosage: 20 MCG, Q1H
     Route: 062

REACTIONS (2)
  - INADEQUATE ANALGESIA [None]
  - SPINAL OPERATION [None]
